FAERS Safety Report 13990675 (Version 1)
Quarter: 2017Q3

REPORT INFORMATION
  Report Type: Spontaneous
  Country: FR (occurrence: FR)
  Receive Date: 20170920
  Receipt Date: 20170920
  Transmission Date: 20171128
  Serious: Yes (Other)
  Sender: FDA-Public Use
  Company Number: FR-IPSEN BIOPHARMACEUTICALS, INC.-2017-05233

PATIENT
  Sex: Female

DRUGS (1)
  1. SOMATULINE L.P. 120MG [Suspect]
     Active Substance: LANREOTIDE ACETATE
     Indication: NEUROENDOCRINE TUMOUR
     Dosage: 120 MG
     Route: 058
     Dates: start: 201612

REACTIONS (5)
  - Dyspareunia [Not Recovered/Not Resolved]
  - Haemostasis [Unknown]
  - Vulvovaginal dryness [Not Recovered/Not Resolved]
  - Colectomy [Unknown]
  - Cholecystectomy [Unknown]

NARRATIVE: CASE EVENT DATE: 2017
